FAERS Safety Report 5806321-X (Version None)
Quarter: 2008Q3

REPORT INFORMATION
  Report Type: 
  Country: None (occurrence: None)
  Receive Date: 20080708
  Receipt Date: 20080701
  Transmission Date: 20090109
  Serious: Yes (Life-Threatening, Other)
  Sender: FDA-Public Use
  Company Number: LIP08003

PATIENT
  Age: 54 Year
  Sex: Male
  Weight: 81.1939 kg

DRUGS (5)
  1. LIPOFEN [Suspect]
     Indication: HYPERTRIGLYCERIDAEMIA
     Dosage: 150 MG DAILY ORAL
     Route: 048
     Dates: start: 20080501, end: 20080619
  2. ATENOLOL [Concomitant]
  3. LISINOPRIL [Concomitant]
  4. OMEPRAZOLE [Concomitant]
  5. AMITRIPTILINE [Concomitant]

REACTIONS (2)
  - ALANINE AMINOTRANSFERASE INCREASED [None]
  - ASPARTATE AMINOTRANSFERASE INCREASED [None]
